FAERS Safety Report 9092708 (Version 1)
Quarter: 2013Q1

REPORT INFORMATION
  Report Type: Spontaneous
  Country: US (occurrence: None)
  Receive Date: 20130213
  Receipt Date: 20130213
  Transmission Date: 20140127
  Serious: Yes (Other)
  Sender: FDA-Public Use
  Company Number: None

PATIENT
  Age: 49 Year
  Sex: Female
  Weight: 68.04 kg

DRUGS (1)
  1. AZITHROMYCIN [Suspect]
     Indication: CAT SCRATCH DISEASE
     Route: 048
     Dates: start: 20130129, end: 20130203

REACTIONS (10)
  - Tachycardia [None]
  - Palpitations [None]
  - Fatigue [None]
  - Malaise [None]
  - Tinnitus [None]
  - Dizziness [None]
  - Insomnia [None]
  - Pruritus [None]
  - Anxiety [None]
  - Product formulation issue [None]
